FAERS Safety Report 17568254 (Version 1)
Quarter: 2020Q1

REPORT INFORMATION
  Report Type: Report from Study
  Country: PE (occurrence: PE)
  Receive Date: 20200320
  Receipt Date: 20200320
  Transmission Date: 20200409
  Serious: Yes (Hospitalization)
  Sender: FDA-Public Use
  Company Number: PE-SEATTLE GENETICS-2020SGN01546

PATIENT
  Sex: Male

DRUGS (1)
  1. BRENTUXIMAB VEDOTIN-MPI [Suspect]
     Active Substance: BRENTUXIMAB VEDOTIN
     Indication: HODGKIN^S DISEASE
     Dosage: 50 MG, UNK
     Route: 042
     Dates: start: 20190927

REACTIONS (5)
  - Haemoglobin decreased [Unknown]
  - Dental caries [Unknown]
  - Pallor [Unknown]
  - Asthenia [Unknown]
  - Fatigue [Unknown]
